FAERS Safety Report 6466014-5 (Version None)
Quarter: 2009Q4

REPORT INFORMATION
  Report Type: 
  Country: None (occurrence: None)
  Receive Date: 20091202
  Receipt Date: 20091120
  Transmission Date: 20100525
  Serious: Yes (Hospitalization)
  Sender: FDA-Public Use
  Company Number: GB-TEVA-216099ISR

PATIENT
  Age: 69 Year
  Sex: Female

DRUGS (2)
  1. SIMVASTATIN [Suspect]
     Indication: SCHIZOPHRENIA
     Route: 048
     Dates: start: 20050101
  2. CLOZAPINE [Suspect]
     Indication: SCHIZOPHRENIA
     Route: 048
     Dates: start: 19990120

REACTIONS (7)
  - BLOOD ALKALINE PHOSPHATASE INCREASED [None]
  - CARDIAC ENZYMES INCREASED [None]
  - CHRONIC OBSTRUCTIVE PULMONARY DISEASE [None]
  - DIABETES MELLITUS [None]
  - MALAISE [None]
  - PERICARDIAL EFFUSION [None]
  - RESPIRATORY DISORDER [None]
